FAERS Safety Report 9499552 (Version 1)
Quarter: 2013Q3

REPORT INFORMATION
  Report Type: Spontaneous
  Country: DE (occurrence: DE)
  Receive Date: 20130905
  Receipt Date: 20130905
  Transmission Date: 20140515
  Serious: Yes (Other)
  Sender: FDA-Public Use
  Company Number: DE-BRISTOL-MYERS SQUIBB COMPANY-19238823

PATIENT
  Age: 82 Year
  Sex: Male

DRUGS (12)
  1. ELIQUIS [Suspect]
     Dosage: TABS
  2. L-THYROXINE [Concomitant]
  3. ATORVASTATIN [Concomitant]
  4. SPIRONOLACTONE [Concomitant]
  5. MAGNESIUM [Concomitant]
  6. TESTOGEL [Concomitant]
  7. PANTOZOL [Concomitant]
  8. CONCOR [Concomitant]
  9. FUROSEMIDE [Concomitant]
  10. MELPERONE HCL [Concomitant]
  11. ASS [Concomitant]
  12. FENTANYL [Concomitant]

REACTIONS (1)
  - Lip and/or oral cavity cancer [Not Recovered/Not Resolved]
